FAERS Safety Report 10747960 (Version 1)
Quarter: 2015Q1

REPORT INFORMATION
  Report Type: Spontaneous
  Country: RO (occurrence: None)
  Receive Date: 20150127
  Receipt Date: 20150127
  Transmission Date: 20150721
  Serious: Yes (Hospitalization)
  Sender: FDA-Public Use
  Company Number: UCM201501-000012

PATIENT
  Age: 64 Year
  Sex: Male

DRUGS (8)
  1. PIROXICAM. [Suspect]
     Active Substance: PIROXICAM
     Indication: PAIN
  2. KETOROLAC [Suspect]
     Active Substance: KETOROLAC\KETOROLAC TROMETHAMINE
     Indication: PAIN
     Dosage: 2 VIALS PER DAY
  3. ALGOCALMINE [Suspect]
     Active Substance: METAMIZOLE SODIUM
     Indication: PAIN
     Dosage: 500 MG, 2 PILLS PER DAY
  4. CELECOXIB (CELECOXIB) (CELECOXIB) [Suspect]
     Active Substance: CELECOXIB
     Indication: PAIN
  5. BISEPTOL [Suspect]
     Active Substance: SULFAMETHOXAZOLE\TRIMETHOPRIM
  6. MELOXICAM (MELOXICAM) (MELOXICAM) [Suspect]
     Active Substance: MELOXICAM
     Indication: PAIN
     Dosage: 15 MG, 2 VIALS PER DAY
  7. IBUPROFEN (IBUPROFEN) (IBUPROFEN) [Suspect]
     Active Substance: IBUPROFEN
     Indication: PAIN
  8. ANTINEVRALGIC [Suspect]
     Active Substance: ASPIRIN\CAFFEINE\PHENACETIN
     Indication: PAIN
     Dosage: 2 PILLS PER DAY

REACTIONS (9)
  - Rhabdomyolysis [None]
  - Oliguria [None]
  - Hyponatraemia [None]
  - Polyneuropathy [None]
  - Acidosis [None]
  - Drug interaction [None]
  - No therapeutic response [None]
  - Hypocalcaemia [None]
  - Oedema peripheral [None]
